FAERS Safety Report 21580187 (Version 2)
Quarter: 2022Q4

REPORT INFORMATION
  Report Type: Spontaneous
  Country: IT (occurrence: IT)
  Receive Date: 20221110
  Receipt Date: 20221201
  Transmission Date: 20230113
  Serious: Yes (Hospitalization)
  Sender: FDA-Public Use
  Company Number: IT-TEVA-2022-IT-2825157

PATIENT
  Age: 30 Year
  Sex: Male

DRUGS (9)
  1. CLOZAPINE [Suspect]
     Active Substance: CLOZAPINE
     Indication: Antipsychotic therapy
     Dosage: 125 MILLIGRAM DAILY;
     Route: 065
  2. CLOZAPINE [Suspect]
     Active Substance: CLOZAPINE
     Indication: Borderline personality disorder
  3. SUBOXONE [Suspect]
     Active Substance: BUPRENORPHINE HYDROCHLORIDE\NALOXONE HYDROCHLORIDE
     Indication: Drug abuse
     Dosage: BUPRENORPHINE 16 MG /NALOXONE 4 MG
     Route: 060
  4. CLOTHIAPINE [Suspect]
     Active Substance: CLOTHIAPINE
     Indication: Antipsychotic therapy
     Dosage: 90 MILLIGRAM DAILY;
     Route: 065
  5. CLOTHIAPINE [Suspect]
     Active Substance: CLOTHIAPINE
     Indication: Borderline personality disorder
     Route: 065
  6. CLOTHIAPINE [Suspect]
     Active Substance: CLOTHIAPINE
     Route: 065
  7. CLONAZEPAM [Suspect]
     Active Substance: CLONAZEPAM
     Indication: Antipsychotic therapy
     Dosage: 4 MILLIGRAM DAILY;
     Route: 065
  8. CLONAZEPAM [Suspect]
     Active Substance: CLONAZEPAM
     Indication: Borderline personality disorder
  9. VALPROATE SODIUM [Concomitant]
     Active Substance: VALPROATE SODIUM
     Indication: Borderline personality disorder
     Dosage: 1500 MILLIGRAM DAILY;
     Route: 065

REACTIONS (10)
  - Influenza like illness [Recovered/Resolved]
  - Hypertension [Recovered/Resolved]
  - Tremor [Recovered/Resolved]
  - Psychomotor hyperactivity [Recovered/Resolved]
  - Aggression [Recovered/Resolved]
  - Drug dependence [Recovered/Resolved]
  - Food craving [Recovered/Resolved]
  - Priapism [Recovered/Resolved]
  - Drug abuse [Recovered/Resolved]
  - Drug withdrawal syndrome [Recovered/Resolved]
